FAERS Safety Report 14614343 (Version 1)
Quarter: 2018Q1

REPORT INFORMATION
  Report Type: Spontaneous
  Country: CA (occurrence: CA)
  Receive Date: 20180308
  Receipt Date: 20180308
  Transmission Date: 20180509
  Serious: Yes (Other)
  Sender: FDA-Public Use
  Company Number: CA-PURDUE PHARMA-CAN-2017-0007473

PATIENT
  Sex: Male

DRUGS (3)
  1. BIPHENTIN [Suspect]
     Active Substance: METHYLPHENIDATE
     Dosage: 15 MG, UNK
     Route: 048
     Dates: start: 20170203, end: 20170209
  2. BIPHENTIN [Suspect]
     Active Substance: METHYLPHENIDATE
     Dosage: 10 MG, DAILY
     Route: 048
  3. BIPHENTIN [Suspect]
     Active Substance: METHYLPHENIDATE
     Indication: ATTENTION DEFICIT/HYPERACTIVITY DISORDER
     Dosage: 10 MG, DAILY
     Route: 048

REACTIONS (4)
  - Raynaud^s phenomenon [Unknown]
  - Skin discolouration [Unknown]
  - Pallor [Unknown]
  - Peripheral coldness [Unknown]
